FAERS Safety Report 10183104 (Version 2)
Quarter: 2014Q2

REPORT INFORMATION
  Report Type: Spontaneous
  Country: US (occurrence: US)
  Receive Date: 20140520
  Receipt Date: 20140617
  Transmission Date: 20141212
  Serious: No
  Sender: FDA-Public Use
  Company Number: US-B.I. PHARMACEUTICALS,INC./RIDGEFIELD-2014-BI-20809BP

PATIENT
  Age: 64 Year
  Sex: Female
  Weight: 49.44 kg

DRUGS (5)
  1. COMBIVENT [Suspect]
     Indication: CHRONIC OBSTRUCTIVE PULMONARY DISEASE
     Dosage: STRENGTH: 20 MCG/100 MCG; DAILY DOSE: 40 MCG/200 MCG
     Route: 055
     Dates: start: 20120319
  2. SPIRIVA [Suspect]
     Indication: CHRONIC OBSTRUCTIVE PULMONARY DISEASE
     Dosage: 18 MCG
     Route: 055
     Dates: start: 20120410
  3. VALIUM [Concomitant]
     Indication: COMPLEX REGIONAL PAIN SYNDROME
     Route: 048
  4. PERCOCET [Concomitant]
     Indication: COMPLEX REGIONAL PAIN SYNDROME
     Route: 048
  5. LYRICA [Concomitant]
     Indication: COMPLEX REGIONAL PAIN SYNDROME
     Route: 048

REACTIONS (1)
  - Oxygen saturation decreased [Not Recovered/Not Resolved]
